FAERS Safety Report 4976638-X (Version None)
Quarter: 2006Q2

REPORT INFORMATION
  Report Type: 
  Country: None (occurrence: None)
  Receive Date: 20060419
  Receipt Date: 20050815
  Transmission Date: 20061013
  Serious: Yes (Other)
  Sender: FDA-Public Use
  Company Number: US-MERCK-0508USA02993

PATIENT
  Age: 46 Year
  Sex: Female

DRUGS (2)
  1. VIOXX [Suspect]
     Indication: ARTHRITIS
     Route: 048
     Dates: start: 20020101, end: 20040901
  2. ASPIRIN [Concomitant]
     Route: 065
     Dates: start: 20020101

REACTIONS (1)
  - CEREBROVASCULAR ACCIDENT [None]
